FAERS Safety Report 8423426-8 (Version None)
Quarter: 2012Q2

REPORT INFORMATION
  Report Type: 
  Country: None (occurrence: None)
  Receive Date: 20120608
  Receipt Date: 20120601
  Transmission Date: 20120825
  Serious: Yes (Death, Other)
  Sender: FDA-Public Use
  Company Number: US-PFIZER INC-2010001350

PATIENT
  Age: 66 Year
  Sex: Female

DRUGS (6)
  1. SEPTRA [Suspect]
     Indication: COMPLETED SUICIDE
     Dosage: UNK
     Route: 048
  2. PIOGLITAZONE HYDROCHLORIDE [Suspect]
     Indication: COMPLETED SUICIDE
     Dosage: UNK
     Route: 048
     Dates: start: 20080101, end: 20080101
  3. CLONAZEPAM [Suspect]
     Indication: COMPLETED SUICIDE
     Dosage: UNK
     Route: 048
     Dates: start: 20080101, end: 20080101
  4. QUETIAPINE [Suspect]
     Indication: COMPLETED SUICIDE
     Dosage: UNK
     Route: 048
     Dates: start: 20080101, end: 20080101
  5. METFORMIN HCL [Suspect]
     Indication: COMPLETED SUICIDE
     Dosage: UNK
     Route: 048
     Dates: start: 20080101, end: 20080101
  6. VENLAFAXINE HCL [Suspect]
     Indication: COMPLETED SUICIDE
     Dosage: UNK
     Route: 048
     Dates: start: 20080101, end: 20080101

REACTIONS (3)
  - INTENTIONAL DRUG MISUSE [None]
  - TOXICITY TO VARIOUS AGENTS [None]
  - COMPLETED SUICIDE [None]
